FAERS Safety Report 20157244 (Version 1)
Quarter: 2021Q4

REPORT INFORMATION
  Report Type: Spontaneous
  Country: US (occurrence: None)
  Receive Date: 20211207
  Receipt Date: 20211207
  Transmission Date: 20220303
  Serious: Yes (Hospitalization, Disabling)
  Sender: FDA-Public Use
  Company Number: None

PATIENT
  Age: 69 Year
  Sex: Female
  Weight: 51.75 kg

DRUGS (13)
  1. NITROFURANTOIN MONOHYDRATE [Suspect]
     Active Substance: NITROFURANTOIN MONOHYDRATE
     Indication: Prophylaxis urinary tract infection
     Dosage: OTHER QUANTITY : 1 CAPSULE(S);?FREQUENCY : EVERY 12 HOURS;?
     Route: 048
     Dates: start: 20211201, end: 20211202
  2. SYNTHROID [Concomitant]
     Active Substance: LEVOTHYROXINE SODIUM
  3. COMPOUNDED T3 SR [Concomitant]
  4. TOPROL XL [Concomitant]
     Active Substance: METOPROLOL SUCCINATE
  5. MYRBETRIQ [Concomitant]
     Active Substance: MIRABEGRON
  6. CITRUCEL [Concomitant]
     Active Substance: METHYLCELLULOSE (4000 MPA.S)
  7. COMPOUNDED HORMONE E3-1MG/E2-0.5MG/PROGESTERONE 125 MG/DHEA [Concomitant]
  8. CAL-GEL [Concomitant]
  9. MULT-VITAMIN COREPLEX [Concomitant]
  10. OROTHOBIOTIC [Concomitant]
  11. SAMBUCOL WITH ELDERBERRY [Concomitant]
  12. VITAMIN C WITH ROSE HIPS [Concomitant]
  13. MENAQUINONE 6 [Concomitant]
     Active Substance: MENAQUINONE 6

REACTIONS (1)
  - Transient global amnesia [None]

NARRATIVE: CASE EVENT DATE: 20211202
